FAERS Safety Report 7638923 (Version 2)
Quarter: 2013Q2

REPORT INFORMATION
  Report Type: Spontaneous
  Country: ES (occurrence: ES)
  Receive Date: 20101025
  Receipt Date: 20130606
  Transmission Date: 20140414
  Serious: Yes (Other)
  Sender: FDA-Public Use
  Company Number: ES-JNJFOC-20101003421

PATIENT
  Age: 86 Year
  Sex: Female
  Weight: 67 kg

DRUGS (16)
  1. STELARA [Suspect]
     Indication: PSORIASIS
     Route: 058
     Dates: start: 20100517
  2. STELARA [Suspect]
     Indication: PSORIASIS
     Route: 058
     Dates: start: 20100215
  3. STELARA [Suspect]
     Indication: PSORIASIS
     Route: 058
     Dates: start: 20100114
  4. ENALAPRIL MALEATO [Concomitant]
     Route: 065
  5. IBANDRONIC ACID [Concomitant]
     Route: 065
  6. ACETYLSALICYLIC ACID [Concomitant]
     Route: 065
  7. CELECOXIB [Concomitant]
     Route: 048
  8. CARBOMER [Concomitant]
     Route: 065
  9. OMEPRAZOLE [Concomitant]
     Route: 065
  10. IBUPROFEN [Concomitant]
     Route: 065
  11. PARACETAMOL [Concomitant]
     Route: 065
  12. LATANOPROST [Concomitant]
     Dosage: 0.005%, 2.5 ML
     Route: 065
  13. GINKGO BILOBA [Concomitant]
     Route: 065
  14. CITALOPRAM [Concomitant]
     Route: 065
  15. BETAHISTINE [Concomitant]
     Route: 065
  16. CALCIUM CARBONATE W/COLECALCIFEROL [Concomitant]
     Route: 065

REACTIONS (2)
  - Toxic skin eruption [Not Recovered/Not Resolved]
  - Neurodermatitis [Not Recovered/Not Resolved]
